FAERS Safety Report 11229375 (Version 2)
Quarter: 2015Q3

REPORT INFORMATION
  Report Type: Report from Study
  Country: CO (occurrence: CO)
  Receive Date: 20150630
  Receipt Date: 20150713
  Transmission Date: 20151125
  Serious: Yes (Death, Other)
  Sender: FDA-Public Use
  Company Number: PHHY2015CO078164

PATIENT
  Age: 28 Year
  Sex: Female
  Weight: 50 kg

DRUGS (1)
  1. EXJADE [Suspect]
     Active Substance: DEFERASIROX
     Indication: THALASSAEMIA BETA
     Dosage: 500 MG (10 MG/KG), QD
     Route: 065

REACTIONS (5)
  - Abdominal pain upper [Fatal]
  - Gastric disorder [Unknown]
  - General physical health deterioration [Fatal]
  - Gastritis [Unknown]
  - Peritonitis [Fatal]

NARRATIVE: CASE EVENT DATE: 20150425
